FAERS Safety Report 6986644-1 (Version None)
Quarter: 2010Q3

REPORT INFORMATION
  Report Type: 
  Country: None (occurrence: None)
  Receive Date: 20100915
  Receipt Date: 20090715
  Transmission Date: 20110219
  Serious: No
  Sender: FDA-Public Use
  Company Number: US-WYE-H10181709

PATIENT
  Sex: Female
  Weight: 62.65 kg

DRUGS (1)
  1. PRISTIQ [Suspect]
     Indication: ANXIETY
     Route: 048
     Dates: start: 20090713

REACTIONS (3)
  - BRUXISM [None]
  - MUSCLE TIGHTNESS [None]
  - PAIN IN JAW [None]
